FAERS Safety Report 5817755-1 (Version None)
Quarter: 2008Q3

REPORT INFORMATION
  Report Type: 
  Country: None (occurrence: None)
  Receive Date: 20080722
  Receipt Date: 20080717
  Transmission Date: 20090109
  Serious: Yes (Hospitalization)
  Sender: FDA-Public Use
  Company Number: DE-WYE-H04968608

PATIENT
  Sex: Male

DRUGS (4)
  1. PROGRAF [Suspect]
     Indication: PROPHYLAXIS AGAINST TRANSPLANT REJECTION
     Dosage: DOSE AND FREQUENCY NOT SPECIFIED
     Route: 048
     Dates: start: 20080216, end: 20080627
  2. PROGRAF [Suspect]
     Dosage: ^2-0-3^
     Route: 065
     Dates: start: 20080628, end: 20080629
  3. PROGRAF [Suspect]
     Dosage: ^0-0-3^
     Route: 065
     Dates: start: 20080630, end: 20080630
  4. PROGRAF [Suspect]
     Dosage: ^0-0-0^
     Route: 065
     Dates: start: 20080701

REACTIONS (2)
  - CHOLANGITIS [None]
  - IMMUNOSUPPRESSANT DRUG LEVEL DECREASED [None]
